FAERS Safety Report 15384291 (Version 1)
Quarter: 2018Q3

REPORT INFORMATION
  Report Type: Spontaneous
  Country: US (occurrence: US)
  Receive Date: 20180907
  Receipt Date: 20180907
  Transmission Date: 20181010
  Serious: Yes (Hospitalization, Disabling, Other)
  Sender: FDA-Public Use
  Company Number: None

PATIENT
  Age: 33 Year
  Sex: Female
  Weight: 70.65 kg

DRUGS (3)
  1. METOPROLOL. [Concomitant]
     Active Substance: METOPROLOL
  2. PROVIGIL [Concomitant]
     Active Substance: MODAFINIL
  3. CIPROFLOXACIN 400MG IV [Suspect]
     Active Substance: CIPROFLOXACIN
     Dosage: ?          QUANTITY:1 INJECTION(S);?
     Route: 042
     Dates: start: 20180820, end: 20180820

REACTIONS (11)
  - Pain [None]
  - Muscle spasms [None]
  - Gait disturbance [None]
  - Hypoaesthesia [None]
  - Paraesthesia [None]
  - Neurotoxicity [None]
  - Agitation [None]
  - Nausea [None]
  - Vomiting [None]
  - Asthenia [None]
  - Cartilage injury [None]

NARRATIVE: CASE EVENT DATE: 20180820
